FAERS Safety Report 7606654-0 (Version None)
Quarter: 2011Q3

REPORT INFORMATION
  Report Type: 
  Country: None (occurrence: None)
  Receive Date: 20110705
  Receipt Date: 20110620
  Transmission Date: 20111222
  Serious: Yes (Hospitalization)
  Sender: FDA-Public Use
  Company Number: DSA_46990_2011

PATIENT
  Age: 77 Year
  Sex: Female

DRUGS (5)
  1. ATORVASTATIN CALCIUM [Concomitant]
  2. DIAMICRON [Concomitant]
  3. ASPIRIN [Concomitant]
  4. DILTIAZEM HYDROCHLORIDE [Suspect]
     Indication: PRODUCT USED FOR UNKNOWN INDICATION
     Dosage: (200 MG ORAL)
     Route: 048
  5. APROVEL [Concomitant]

REACTIONS (3)
  - TOXIC SKIN ERUPTION [None]
  - PYREXIA [None]
  - URTICARIA PAPULAR [None]
